FAERS Safety Report 7291044-3 (Version None)
Quarter: 2011Q1

REPORT INFORMATION
  Report Type: 
  Country: None (occurrence: None)
  Receive Date: 20110214
  Receipt Date: 20110208
  Transmission Date: 20110831
  Serious: Yes (Other)
  Sender: FDA-Public Use
  Company Number: US-ABBOTT-11P-163-0703699-00

PATIENT
  Sex: Female
  Weight: 63.56 kg

DRUGS (16)
  1. NIZATIDINE [Concomitant]
     Indication: GASTROOESOPHAGEAL REFLUX DISEASE
  2. QUINAPRIL [Concomitant]
     Indication: PRODUCT USED FOR UNKNOWN INDICATION
  3. VITAMIN D [Concomitant]
     Indication: VITAMIN SUPPLEMENTATION
  4. LORAZEPAM [Concomitant]
     Indication: DEPRESSION
  5. FISH OIL [Concomitant]
     Indication: SUPPLEMENTATION THERAPY
  6. ZOCOR [Concomitant]
     Indication: BLOOD CHOLESTEROL INCREASED
  7. MULTI-VITAMIN [Concomitant]
     Indication: VITAMIN SUPPLEMENTATION
  8. HUMIRA [Suspect]
     Dates: start: 20110204
  9. AMBIEN [Concomitant]
     Indication: INSOMNIA
     Dosage: AT BEDTIME
  10. METHOTREXATE [Concomitant]
     Indication: RHEUMATOID ARTHRITIS
  11. HUMIRA [Suspect]
     Indication: RHEUMATOID ARTHRITIS
     Dates: start: 20091201, end: 20101101
  12. ZOLOFT [Concomitant]
     Indication: DEPRESSION
  13. GENERIC PLAQUENIL [Concomitant]
     Indication: RHEUMATOID ARTHRITIS
  14. PREDNISONE [Concomitant]
     Indication: RHEUMATOID ARTHRITIS
  15. MELOXICAM [Concomitant]
     Indication: RHEUMATOID ARTHRITIS
  16. FLEXERIL [Concomitant]
     Indication: PRODUCT USED FOR UNKNOWN INDICATION
     Dosage: 3 TIMES DAILY AS NEEDED

REACTIONS (4)
  - DEVICE COMPONENT ISSUE [None]
  - MYOCARDIAL CALCIFICATION [None]
  - AORTIC ANEURYSM [None]
  - PAIN [None]
